FAERS Safety Report 11191978 (Version 1)
Quarter: 2015Q2

REPORT INFORMATION
  Report Type: Spontaneous
  Country: US (occurrence: US)
  Receive Date: 20150616
  Receipt Date: 20150616
  Transmission Date: 20150821
  Serious: No
  Sender: FDA-Public Use
  Company Number: US-JNJFOC-20150603827

PATIENT
  Sex: Female
  Weight: 61.69 kg

DRUGS (1)
  1. DURAGESIC [Suspect]
     Active Substance: FENTANYL
     Indication: CANCER PAIN
     Route: 062

REACTIONS (4)
  - Wrong technique in drug usage process [Unknown]
  - Hot flush [Not Recovered/Not Resolved]
  - Therapeutic response decreased [Unknown]
  - Product adhesion issue [Unknown]
